FAERS Safety Report 23495681 (Version 2)
Quarter: 2024Q2

REPORT INFORMATION
  Report Type: Spontaneous
  Country: US (occurrence: US)
  Receive Date: 20240207
  Receipt Date: 20240513
  Transmission Date: 20240716
  Serious: No
  Sender: FDA-Public Use
  Company Number: US-LUNDBECK-DKLU3072658

PATIENT
  Age: 31 Year
  Sex: Male

DRUGS (6)
  1. NORTHERA [Suspect]
     Active Substance: DROXIDOPA
     Indication: Postural orthostatic tachycardia syndrome
     Route: 048
     Dates: start: 20231025
  2. NORTHERA [Suspect]
     Active Substance: DROXIDOPA
     Indication: Autonomic nervous system imbalance
  3. NORTHERA [Suspect]
     Active Substance: DROXIDOPA
     Indication: Adverse drug reaction
  4. NORTHERA [Suspect]
     Active Substance: DROXIDOPA
     Indication: Spinal cord injury cervical
  5. FLONASE ALLERGY RELIEF [Concomitant]
     Active Substance: FLUTICASONE PROPIONATE
     Indication: Product used for unknown indication
     Route: 065
  6. NADOLOL [Concomitant]
     Active Substance: NADOLOL
     Indication: Product used for unknown indication
     Route: 065

REACTIONS (3)
  - Hot flush [Unknown]
  - Malaise [Unknown]
  - Product dose omission issue [Unknown]
